FAERS Safety Report 4652638-4 (Version None)
Quarter: 2005Q2

REPORT INFORMATION
  Report Type: 
  Country: None (occurrence: None)
  Receive Date: 20050502
  Receipt Date: 20050426
  Transmission Date: 20051028
  Serious: Yes (Life-Threatening, Hospitalization)
  Sender: FDA-Public Use
  Company Number: J081-002-001925

PATIENT
  Age: 86 Year
  Sex: Female
  Weight: 41 kg

DRUGS (10)
  1. ARICEPT [Suspect]
     Indication: DEMENTIA
     Dosage: SEE IMAGE
     Route: 048
     Dates: start: 20050114, end: 20050127
  2. ARICEPT [Suspect]
     Indication: DEMENTIA
     Dosage: SEE IMAGE
     Route: 048
     Dates: start: 20050128, end: 20050128
  3. ARICEPT [Suspect]
     Indication: DEMENTIA
     Dosage: SEE IMAGE
     Route: 048
     Dates: start: 20050221, end: 20050223
  4. PLETAL [Suspect]
     Indication: LACUNAR INFARCTION
     Dosage: 100 MG, 2 IN 1 D, ORAL
     Route: 048
     Dates: start: 20050114, end: 20050223
  5. LOCHOL (FLUVASTATIN SDOIUM) [Suspect]
     Indication: HYPERCHOLESTEROLAEMIA
     Dosage: 20 MG, 1 IN 1 D, ORAL
     Route: 048
     Dates: start: 20050114, end: 20050223
  6. NORVASC [Concomitant]
  7. TRANTOWA (TRANDOLAPRIL) [Concomitant]
  8. FLAVOSTEN (IPRIFLAVONE) [Concomitant]
  9. AZUCERENIN S (SODIUM AZULENE SULFONATE L-GLUTAMINE) [Concomitant]
  10. FENILENE (FERROUS CITRATE) [Concomitant]

REACTIONS (9)
  - ARRHYTHMIA [None]
  - BLOOD INSULIN INCREASED [None]
  - GLUCOSE TOLERANCE IMPAIRED [None]
  - HYPERCHOLESTEROLAEMIA [None]
  - HYPOGLYCAEMIC COMA [None]
  - LACUNAR INFARCTION [None]
  - MEMORY IMPAIRMENT [None]
  - NAUSEA [None]
  - WRONG DRUG ADMINISTERED [None]
